FAERS Safety Report 6935746-4 (Version None)
Quarter: 2010Q3

REPORT INFORMATION
  Report Type: 
  Country: None (occurrence: None)
  Receive Date: 20100823
  Receipt Date: 20100706
  Transmission Date: 20110219
  Serious: Yes (Hospitalization)
  Sender: FDA-Public Use
  Company Number: US-BAYER-201020362NA

PATIENT
  Age: 41 Year
  Sex: Female
  Weight: 64 kg

DRUGS (3)
  1. YAZ [Suspect]
     Indication: BLOOD TESTOSTERONE INCREASED
     Route: 048
     Dates: start: 20080301, end: 20080401
  2. ASPIRIN [Concomitant]
  3. ALAVERT [Concomitant]

REACTIONS (7)
  - CHEST PAIN [None]
  - DIZZINESS [None]
  - DYSPNOEA EXERTIONAL [None]
  - GAIT DISTURBANCE [None]
  - HEADACHE [None]
  - PALPITATIONS [None]
  - PULMONARY EMBOLISM [None]
